FAERS Safety Report 10744835 (Version 1)
Quarter: 2015Q1

REPORT INFORMATION
  Report Type: Spontaneous
  Country: US (occurrence: None)
  Receive Date: 20150126
  Receipt Date: 20150126
  Transmission Date: 20150721
  Serious: Yes (Disabling, Other)
  Sender: FDA-Public Use
  Company Number: None

PATIENT
  Age: 45 Year
  Sex: Female

DRUGS (1)
  1. LEVOFLOXACIN. [Suspect]
     Active Substance: LEVOFLOXACIN
     Indication: PNEUMONIA
     Dosage: ONE TABLET
     Route: 048
     Dates: start: 20141205, end: 20141211

REACTIONS (6)
  - Diplopia [None]
  - Paraesthesia [None]
  - Pain in extremity [None]
  - Nausea [None]
  - Gastrooesophageal reflux disease [None]
  - Dizziness [None]

NARRATIVE: CASE EVENT DATE: 20141214
